FAERS Safety Report 8256839-8 (Version None)
Quarter: 2012Q1

REPORT INFORMATION
  Report Type: 
  Country: None (occurrence: None)
  Receive Date: 20120322
  Receipt Date: 20120214
  Transmission Date: 20120608
  Serious: Yes (Hospitalization)
  Sender: FDA-Public Use
  Company Number: UTC-015611

PATIENT
  Age: 37 Year
  Sex: Female
  Weight: 78.27 kg

DRUGS (2)
  1. TYVASO [Suspect]
     Indication: COR PULMONALE CHRONIC
     Dosage: 216 MCG (54 MCG, 4 IN 1D), INHALATION
     Route: 055
     Dates: start: 20091229
  2. LETAIRIS [Concomitant]

REACTIONS (3)
  - CHEST PAIN [None]
  - VOMITING [None]
  - ABDOMINAL DISTENSION [None]
